FAERS Safety Report 22105715 (Version 1)
Quarter: 2023Q1

REPORT INFORMATION
  Report Type: Spontaneous
  Country: IN (occurrence: IN)
  Receive Date: 20230317
  Receipt Date: 20230317
  Transmission Date: 20230418
  Serious: Yes (Other)
  Sender: FDA-Public Use
  Company Number: IN-002147023-NVSC2023IN057855

PATIENT
  Sex: Male

DRUGS (3)
  1. VOTRIENT [Suspect]
     Active Substance: PAZOPANIB HYDROCHLORIDE
     Indication: Renal cell carcinoma
     Dosage: 400 MG, QD
     Route: 065
     Dates: start: 20220115
  2. VOTRIENT [Suspect]
     Active Substance: PAZOPANIB HYDROCHLORIDE
     Dosage: UNK UNK, QD (800 MG OD AND 400 MG OD IN ALTERNATE DAYS)
     Route: 065
     Dates: end: 20230210
  3. VOTRIENT [Suspect]
     Active Substance: PAZOPANIB HYDROCHLORIDE
     Dosage: UNK UNK, QD (800 MG OD AND 400 MG OD IN ALTERNATE DAYS)
     Route: 065
     Dates: start: 20230211

REACTIONS (1)
  - Arrhythmia [Not Recovered/Not Resolved]
